FAERS Safety Report 14982746 (Version 2)
Quarter: 2019Q3

REPORT INFORMATION
  Report Type: Spontaneous
  Country: US (occurrence: US)
  Receive Date: 20180607
  Receipt Date: 20190917
  Transmission Date: 20191004
  Serious: Yes (Other)
  Sender: FDA-Public Use
  Company Number: US-SA-2017SA265617

PATIENT
  Age: 48 Year
  Sex: Female
  Weight: 113.39 kg

DRUGS (11)
  1. TAXOTERE [Suspect]
     Active Substance: DOCETAXEL
     Dosage: UNK UNK, Q3W
     Route: 042
     Dates: start: 20130131, end: 20130131
  2. HERCEPTIN [Concomitant]
     Active Substance: TRASTUZUMAB
     Indication: BREAST CANCER FEMALE
     Dosage: UNK, UNK
     Route: 065
  3. AMBIEN [Concomitant]
     Active Substance: ZOLPIDEM TARTRATE
     Dosage: UNK, UNK
     Route: 065
  4. MULTIGEN PLUS [Concomitant]
     Dosage: UNK, UNK
     Route: 065
  5. PARAPLATIN [Concomitant]
     Active Substance: CARBOPLATIN
     Indication: BREAST CANCER FEMALE
     Dosage: UNK, UNK
     Route: 065
  6. TAMOXIFEN [Concomitant]
     Active Substance: TAMOXIFEN
     Dosage: UNK, UNK
     Route: 065
  7. CARVEDILOL. [Concomitant]
     Active Substance: CARVEDILOL
     Dosage: UNK, UNK
     Route: 065
  8. NEURONTIN [Concomitant]
     Active Substance: GABAPENTIN
     Dosage: UNK, UNK
     Route: 065
  9. TAXOTERE [Suspect]
     Active Substance: DOCETAXEL
     Indication: BREAST CANCER FEMALE
     Dosage: UNK UNK, Q3W
     Route: 042
     Dates: start: 20121018, end: 20121018
  10. XANAX [Concomitant]
     Active Substance: ALPRAZOLAM
     Dosage: UNK UNK, UNK
     Route: 065
  11. EFFEXOR [Concomitant]
     Active Substance: VENLAFAXINE HYDROCHLORIDE
     Dosage: UNK, UNK
     Route: 065

REACTIONS (2)
  - Alopecia [Recovering/Resolving]
  - Psychological trauma [Unknown]

NARRATIVE: CASE EVENT DATE: 201307
